FAERS Safety Report 4522119-7 (Version None)
Quarter: 2004Q4

REPORT INFORMATION
  Report Type: 
  Country: None (occurrence: None)
  Receive Date: 20041207
  Receipt Date: 20030110
  Transmission Date: 20050328
  Serious: Yes (Death)
  Sender: FDA-Public Use
  Company Number: 0001

PATIENT
  Age: 59 Year
  Sex: Female

DRUGS (9)
  1. CO-TUSS-V (GUAIFENESIN, HYDROCODONE) [Suspect]
  2. SERZONE [Concomitant]
  3. ASPIRIN [Concomitant]
  4. DEPAKOTE [Concomitant]
  5. LEVOTHYROXINE SODIUM [Concomitant]
  6. SINGULAIR (ZIRLUKFAST) [Concomitant]
  7. BUSPAR [Concomitant]
  8. ALLEGRA [Concomitant]
  9. GUIATUSS AC (GUAIFENESIN, CODEINE) [Concomitant]

REACTIONS (4)
  - CARDIO-RESPIRATORY ARREST [None]
  - COMA [None]
  - LOSS OF CONSCIOUSNESS [None]
  - MULTIPLE DRUG OVERDOSE [None]
